FAERS Safety Report 4585262-2 (Version None)
Quarter: 2005Q1

REPORT INFORMATION
  Report Type: 
  Country: None (occurrence: None)
  Receive Date: 20050217
  Receipt Date: 20050127
  Transmission Date: 20050727
  Serious: Yes (Other)
  Sender: FDA-Public Use
  Company Number: US-GLAXOSMITHKLINE-A0543779A

PATIENT
  Age: 51 Year
  Sex: Female

DRUGS (3)
  1. WELLBUTRIN XL [Suspect]
     Indication: DEPRESSION
     Dosage: 300MG PER DAY
     Route: 048
     Dates: start: 20050106, end: 20050120
  2. EFFEXOR XR [Concomitant]
     Dosage: 75MG PER DAY
     Route: 048
  3. LASIX [Concomitant]
     Dosage: 40MG AS REQUIRED
     Route: 048

REACTIONS (1)
  - CONVULSION [None]
